FAERS Safety Report 9592219 (Version 1)
Quarter: 2013Q4

REPORT INFORMATION
  Report Type: Spontaneous
  Country: BR (occurrence: BR)
  Receive Date: 20131004
  Receipt Date: 20131004
  Transmission Date: 20140711
  Serious: Yes (Other)
  Sender: FDA-Public Use
  Company Number: BR-ASTRAZENECA-2013SE72781

PATIENT
  Age: 899 Month
  Sex: Female
  Weight: 62 kg

DRUGS (1)
  1. ATACAND [Suspect]
     Indication: HYPERTENSION
     Route: 048
     Dates: start: 20130403

REACTIONS (2)
  - Blood pressure systolic increased [Recovered/Resolved]
  - Drug ineffective [Unknown]
